FAERS Safety Report 6394378-X (Version None)
Quarter: 2009Q4

REPORT INFORMATION
  Report Type: 
  Country: None (occurrence: None)
  Receive Date: 20091006
  Receipt Date: 20090915
  Transmission Date: 20100525
  Serious: Yes (Hospitalization, Other)
  Sender: FDA-Public Use
  Company Number: 2009-3894

PATIENT
  Age: 7 Year
  Sex: Male

DRUGS (2)
  1. INCRELEX [Suspect]
     Indication: DWARFISM
     Dosage: 240 UG/KG (120 UG/KG, 2 IN 1 D) SUBCUTANEOUS
     Route: 058
     Dates: start: 20090701, end: 20090901
  2. INCRELEX [Suspect]
     Indication: INSULIN-LIKE GROWTH FACTOR DECREASED
     Dosage: 240 UG/KG (120 UG/KG, 2 IN 1 D) SUBCUTANEOUS
     Route: 058
     Dates: start: 20090701, end: 20090901

REACTIONS (3)
  - ABDOMINAL DISCOMFORT [None]
  - HYPOGLYCAEMIA [None]
  - LOSS OF CONSCIOUSNESS [None]
